FAERS Safety Report 7605094-8 (Version None)
Quarter: 2011Q3

REPORT INFORMATION
  Report Type: 
  Country: None (occurrence: None)
  Receive Date: 20110713
  Receipt Date: 20101018
  Transmission Date: 20111222
  Serious: Yes (Disabling)
  Sender: FDA-Public Use
  Company Number: CA-BAYER-201032978NA

PATIENT
  Age: 57 Year
  Sex: Female
  Weight: 58.5 kg

DRUGS (23)
  1. CORTEF [Concomitant]
     Dosage: 5 MG, TID
     Route: 048
  2. AVELOX [Suspect]
     Indication: RESPIRATORY TRACT INFECTION
     Dosage: 400 MG, QD
     Dates: start: 20100601, end: 20100602
  3. ACETAMINOPHEN [Concomitant]
     Indication: PAIN
  4. CAFFEINE CITRATE [Concomitant]
     Indication: PAIN
  5. CODEINE [Concomitant]
     Indication: PAIN
  6. NOVOLIN [INSULIN] [Concomitant]
     Dosage: UNK
     Dates: start: 20040101
  7. CALCIUM CARBONATE [Concomitant]
  8. COMBIVENT [Concomitant]
     Dosage: UNK
     Dates: start: 20050501
  9. PRINIVIL [Concomitant]
     Dosage: 20 MG, UNK
     Dates: start: 20040401
  10. AVELOX [Suspect]
     Dosage: 400 MG, UNK
     Dates: start: 20080601, end: 20080601
  11. FUROSEMIDE [Concomitant]
     Dosage: 40 MG, UNK
     Dates: start: 20041101
  12. LORAZEPAM [Concomitant]
     Dosage: 2 MG, BID
     Route: 048
     Dates: start: 20041001
  13. DALBITAMOL [Concomitant]
     Dosage: UNK
     Dates: start: 20071101
  14. CARVEDILOL [Concomitant]
     Dosage: UNK
     Dates: start: 20100101
  15. WARFARIN SODIUM [Concomitant]
     Dosage: 3 MG, UNK
     Dates: start: 20041001
  16. MOTRIM [Concomitant]
     Dosage: UNK UNK, PRN
  17. PULMICORT [Concomitant]
     Dosage: 0.5 UNK, UNK
     Dates: start: 20050201
  18. LANOXIN [Concomitant]
     Dosage: UNK
     Dates: start: 20041201
  19. AVELOX [Suspect]
     Indication: SINUSITIS
     Dosage: 400 MG, QD
     Dates: start: 20100101
  20. AVELOX [Suspect]
     Dosage: UNK
     Route: 048
     Dates: start: 20100610, end: 20100614
  21. AVELOX [Suspect]
     Dosage: 400 MG, UNK
     Dates: start: 20080101, end: 20080101
  22. MULTI-VITAMINS [Concomitant]
  23. MINOCIN [Concomitant]
     Dosage: 100 MG, UNK
     Route: 048

REACTIONS (8)
  - PALPITATIONS [None]
  - MALAISE [None]
  - RHEUMATOID ARTHRITIS [None]
  - PAIN IN EXTREMITY [None]
  - OEDEMA PERIPHERAL [None]
  - HAND DEFORMITY [None]
  - MOBILITY DECREASED [None]
  - PAINFUL RESPIRATION [None]
